FAERS Safety Report 8423224-5 (Version None)
Quarter: 2012Q2

REPORT INFORMATION
  Report Type: 
  Country: None (occurrence: None)
  Receive Date: 20120608
  Receipt Date: 20120531
  Transmission Date: 20120825
  Serious: Yes (Hospitalization)
  Sender: FDA-Public Use
  Company Number: US-JNJFOC-20120601057

PATIENT
  Sex: Female
  Weight: 44.1 kg

DRUGS (4)
  1. PROBIOTICS [Concomitant]
  2. INFLIXIMAB, RECOMBINANT [Suspect]
     Route: 042
     Dates: start: 20090709
  3. INFLIXIMAB, RECOMBINANT [Suspect]
     Indication: INFLAMMATORY BOWEL DISEASE
     Route: 042
     Dates: start: 20120306
  4. ANTIBIOTICS [Concomitant]

REACTIONS (2)
  - COLITIS [None]
  - GASTRITIS [None]
